FAERS Safety Report 9372765 (Version 2)
Quarter: 2014Q2

REPORT INFORMATION
  Report Type: Report from Study
  Country: US (occurrence: US)
  Receive Date: 20130627
  Receipt Date: 20140626
  Transmission Date: 20141212
  Serious: Yes (Life-Threatening)
  Sender: FDA-Public Use
  Company Number: US-MYLANLABS-2013S1008162

PATIENT
  Age: 30 Year
  Sex: Female
  Weight: 83.92 kg

DRUGS (13)
  1. CLOZAPINE TABLETS [Suspect]
     Indication: SCHIZOAFFECTIVE DISORDER
     Route: 048
     Dates: start: 20130212, end: 20130409
  2. CLOZAPINE TABLETS [Suspect]
     Indication: SCHIZOAFFECTIVE DISORDER
     Route: 048
     Dates: start: 20130212, end: 20130409
  3. METOPROLOL [Concomitant]
     Route: 048
  4. SENNA [Concomitant]
     Route: 048
  5. TRAZODONE [Concomitant]
  6. HALDOL DECANOATE [Concomitant]
     Route: 030
  7. REQUIP [Concomitant]
     Route: 048
  8. TRAMADOL [Concomitant]
     Route: 048
  9. TRIAMCINOLONE [Concomitant]
  10. TIZANIDINE [Concomitant]
  11. ADVAIR [Concomitant]
  12. VENTOLIN [Concomitant]
  13. IBUPROFEN [Concomitant]

REACTIONS (2)
  - Agranulocytosis [Recovered/Resolved]
  - Leukopenia [Recovered/Resolved]
